FAERS Safety Report 6242062-5 (Version None)
Quarter: 2009Q2

REPORT INFORMATION
  Report Type: 
  Country: None (occurrence: None)
  Receive Date: 20090622
  Receipt Date: 20090615
  Transmission Date: 20091009
  Serious: Yes (Other)
  Sender: FDA-Public Use
  Company Number: FABR-1000806

PATIENT
  Age: 35 Year
  Sex: Male
  Weight: 87 kg

DRUGS (6)
  1. FABRAZYME [Suspect]
     Indication: FABRY'S DISEASE
     Dosage: 1 MG/KG, Q2W, INTRAVENOUS
     Route: 042
     Dates: start: 20090225
  2. SOLU-MEDROL [Concomitant]
  3. FENISTIL (DIMETINDENE MALEATE) [Concomitant]
  4. RANITIDINE (RANITIDINE) TABLET [Concomitant]
  5. LEVOCETIRIZINE DIHYDROCHLORIDE [Concomitant]
  6. MEDROL [Concomitant]

REACTIONS (5)
  - DYSPHONIA [None]
  - ERYTHEMA [None]
  - EYELID OEDEMA [None]
  - FACE OEDEMA [None]
  - TONGUE OEDEMA [None]
